FAERS Safety Report 8533984-0 (Version None)
Quarter: 2012Q3

REPORT INFORMATION
  Report Type: 
  Country: None (occurrence: None)
  Receive Date: 20120724
  Receipt Date: 20120712
  Transmission Date: 20120928
  Serious: Yes (Hospitalization, Disabling, Other)
  Sender: FDA-Public Use
  Company Number: US-009507513-1103USA00839

PATIENT

DRUGS (8)
  1. FOSAMAX [Suspect]
     Dosage: 70 MG, UNK
     Route: 048
     Dates: start: 20080306, end: 20081106
  2. CALCIUM (UNSPECIFIED) [Concomitant]
     Dosage: 1500 MG, UNK
     Dates: start: 19850101
  3. FOSAMAX [Suspect]
     Dosage: 70 MG, UNK
     Route: 048
     Dates: start: 20090110, end: 20090316
  4. FOSAMAX [Suspect]
  5. FOSAMAX [Suspect]
  6. FOSAMAX [Suspect]
     Indication: OSTEOPOROSIS
     Dosage: 70 MG, QW
     Route: 048
     Dates: start: 20010101, end: 20080301
  7. VITAMIN D (UNSPECIFIED) [Concomitant]
     Dosage: 800-1000
     Dates: start: 19990101, end: 20100101
  8. FOSAMAX [Suspect]
     Indication: OSTEOPENIA
     Dosage: 10 MG, UNK
     Route: 048
     Dates: start: 19990401, end: 20010101

REACTIONS (14)
  - FALL [None]
  - DIVERTICULUM INTESTINAL [None]
  - HYPOAESTHESIA [None]
  - LOW TURNOVER OSTEOPATHY [None]
  - NEPHROLITHIASIS [None]
  - HYPERLIPIDAEMIA [None]
  - FEMUR FRACTURE [None]
  - HUMERUS FRACTURE [None]
  - COLON ADENOMA [None]
  - UPPER LIMB FRACTURE [None]
  - OSTEOARTHRITIS [None]
  - CALCULUS URETERIC [None]
  - HAEMORRHOIDS [None]
  - VITAMIN D DEFICIENCY [None]
